FAERS Safety Report 8246627-0 (Version None)
Quarter: 2012Q1

REPORT INFORMATION
  Report Type: 
  Country: None (occurrence: None)
  Receive Date: 20120330
  Receipt Date: 20120326
  Transmission Date: 20120608
  Serious: Yes (Death)
  Sender: FDA-Public Use
  Company Number: JP-PFIZER INC-2012077843

PATIENT
  Age: 66 Year
  Sex: Male
  Weight: 70 kg

DRUGS (28)
  1. SUNITINIB MALATE [Suspect]
     Dosage: 37.5 MG, 1X/DAY
     Dates: start: 20081014, end: 20081110
  2. SUNITINIB MALATE [Suspect]
     Dosage: 37.5 MG, 1X/DAY
     Dates: start: 20090114, end: 20090210
  3. SUNITINIB MALATE [Suspect]
     Dosage: 25 MG, 1X/DAY
     Dates: start: 20090522, end: 20090604
  4. TRICHLORMETHIAZIDE [Concomitant]
     Indication: HEPATIC CIRRHOSIS
     Dosage: 2 MG, 2X/DAY
     Route: 048
     Dates: start: 20090227
  5. SUNITINIB MALATE [Suspect]
     Dosage: 37.5 MG, 1X/DAY
     Dates: start: 20081203, end: 20081216
  6. SUNITINIB MALATE [Suspect]
     Dosage: 37.5 MG, 1X/DAY
     Dates: start: 20090313, end: 20090326
  7. SUNITINIB MALATE [Suspect]
     Dosage: 12.5 MG, 1X/DAY
     Dates: start: 20100107, end: 20100130
  8. LEVOTHYROXINE SODIUM [Concomitant]
     Dosage: 25 UG, 1X/DAY
     Route: 048
     Dates: end: 20081111
  9. CANDESARTAN CILEXETIL [Concomitant]
     Dosage: 4 MG, 1X/DAY
     Route: 048
  10. SUNITINIB MALATE [Suspect]
     Dosage: 25 MG, 1X/DAY
     Dates: start: 20090327, end: 20090409
  11. SUNITINIB MALATE [Suspect]
     Dosage: 37.5 MG, 1X/DAY
     Dates: start: 20090619, end: 20090702
  12. SUNITINIB MALATE [Suspect]
     Dosage: 25 MG, 1X/DAY
     Dates: start: 20090801, end: 20090827
  13. LASIX [Concomitant]
     Indication: HEPATIC CIRRHOSIS
     Dosage: 20 MG, 2X/DAY
     Route: 048
  14. LEVOTHYROXINE SODIUM [Concomitant]
     Dosage: 100 UG, 1X/DAY
     Route: 048
     Dates: start: 20090114, end: 20090127
  15. OMEPRAZOLE [Concomitant]
     Indication: HAEMORRHAGE PROPHYLAXIS
     Dosage: 20 MG, 1X/DAY
     Route: 048
  16. FERROUS CITRATE [Concomitant]
     Indication: IRON DEFICIENCY ANAEMIA
     Dosage: 100 MG, 2X/DAY
     Route: 048
  17. SUNITINIB MALATE [Suspect]
     Dosage: 25 MG, 1X/DAY
     Dates: start: 20091029, end: 20091115
  18. SUNITINIB MALATE [Suspect]
     Dosage: 25 MG, 1X/DAY
     Dates: start: 20090703, end: 20090716
  19. SUNITINIB MALATE [Suspect]
     Dosage: 12.5 MG, 1X/DAY
     Dates: start: 20091120, end: 20091217
  20. AMLODIPINE [Concomitant]
     Dosage: 5 MG, 1X/DAY
     Route: 048
  21. SUNITINIB MALATE [Suspect]
     Dosage: 25 MG, 1X/DAY
     Dates: start: 20081217, end: 20081230
  22. SUNITINIB MALATE [Suspect]
     Dosage: 37.5 MG, 1X/DAY
     Dates: start: 20090508, end: 20090521
  23. SUNITINIB MALATE [Suspect]
     Dosage: 25 MG, 1X/DAY
     Dates: start: 20090917, end: 20091014
  24. LEVOTHYROXINE SODIUM [Concomitant]
     Dosage: 50 UG, 1X/DAY
     Route: 048
     Dates: start: 20081112, end: 20081208
  25. LEVOTHYROXINE SODIUM [Concomitant]
     Dosage: 75 UG, 1X/DAY
     Route: 048
     Dates: start: 20081217
  26. LEVOTHYROXINE SODIUM [Concomitant]
     Dosage: 125 UG, 1X/DAY
     Route: 048
     Dates: start: 20090128, end: 20090212
  27. LEVOTHYROXINE SODIUM [Concomitant]
     Dosage: 150 UG, 1X/DAY
     Route: 048
     Dates: start: 20090213
  28. SUNITINIB MALATE [Suspect]
     Indication: GASTROINTESTINAL STROMAL TUMOUR
     Dosage: 50 MG, 1X/DAY
     Dates: start: 20080827, end: 20080918

REACTIONS (1)
  - DEATH [None]
